FAERS Safety Report 10445099 (Version 3)
Quarter: 2014Q3

REPORT INFORMATION
  Report Type: Spontaneous
  Country: JP (occurrence: JP)
  Receive Date: 20140910
  Receipt Date: 20140916
  Transmission Date: 20150326
  Serious: Yes (Other)
  Sender: FDA-Public Use
  Company Number: JP-B.I. PHARMACEUTICALS,INC./RIDGEFIELD-2014-BI-40822NB

PATIENT
  Age: 50 Year
  Sex: Male

DRUGS (3)
  1. LANIRAPID [Concomitant]
     Active Substance: METILDIGOXIN
     Indication: CONGESTIVE CARDIOMYOPATHY
     Route: 048
     Dates: start: 20140829
  2. LUPRAC [Concomitant]
     Active Substance: TORSEMIDE
     Indication: CONGESTIVE CARDIOMYOPATHY
     Route: 048
     Dates: start: 20140829
  3. PRAZAXA [Suspect]
     Active Substance: DABIGATRAN ETEXILATE MESYLATE
     Indication: ATRIAL FIBRILLATION
     Dosage: 300 MG
     Route: 048
     Dates: start: 20140830

REACTIONS (2)
  - Transient ischaemic attack [Not Recovered/Not Resolved]
  - Drug effect incomplete [Unknown]

NARRATIVE: CASE EVENT DATE: 20140831
